FAERS Safety Report 24863937 (Version 1)
Quarter: 2025Q1

REPORT INFORMATION
  Report Type: Spontaneous
  Country: US (occurrence: US)
  Receive Date: 20250120
  Receipt Date: 20250120
  Transmission Date: 20250408
  Serious: Yes (Disabling)
  Sender: BOEHRINGER INGELHEIM
  Company Number: US-Komodo Health-a23aa000005J0xVAAS

PATIENT
  Age: 60 Year
  Sex: Female

DRUGS (1)
  1. COMBIVENT RESPIMAT [Suspect]
     Active Substance: ALBUTEROL SULFATE\IPRATROPIUM BROMIDE
     Indication: Chronic obstructive pulmonary disease
     Dosage: 1 PUFF

REACTIONS (3)
  - Post procedural complication [Recovered/Resolved]
  - Limb injury [Recovered/Resolved]
  - Hypoacusis [Not Recovered/Not Resolved]

NARRATIVE: CASE EVENT DATE: 20120101
